FAERS Safety Report 11086538 (Version 1)
Quarter: 2015Q2

REPORT INFORMATION
  Report Type: Spontaneous
  Country: US (occurrence: US)
  Receive Date: 20150504
  Receipt Date: 20150504
  Transmission Date: 20150821
  Serious: Yes (Other)
  Sender: FDA-Public Use
  Company Number: US-NOVEN PHARMACEUTICALS, INC.-US2015000238

PATIENT
  Age: 14 Year
  Sex: Male

DRUGS (1)
  1. DAYTRANA [Suspect]
     Active Substance: METHYLPHENIDATE
     Indication: PRODUCT USED FOR UNKNOWN INDICATION
     Dosage: 30 MG, UNK
     Route: 062

REACTIONS (9)
  - Aggression [Unknown]
  - Mood swings [Unknown]
  - Ill-defined disorder [Unknown]
  - Suicidal ideation [Unknown]
  - Insomnia [Unknown]
  - Paranoia [Unknown]
  - Depression [Unknown]
  - Drug diversion [Unknown]
  - Abnormal behaviour [Unknown]
